FAERS Safety Report 18539326 (Version 1)
Quarter: 2020Q4

REPORT INFORMATION
  Report Type: Spontaneous
  Country: US (occurrence: US)
  Receive Date: 20201124
  Receipt Date: 20201124
  Transmission Date: 20210114
  Serious: No
  Sender: FDA-Public Use
  Company Number: US-KERYX BIOPHARMACEUTICALS INC.-2020US006700

PATIENT
  Sex: Female

DRUGS (5)
  1. AURYXIA [Suspect]
     Active Substance: TETRAFERRIC TRICITRATE DECAHYDRATE
     Indication: PRODUCT USED FOR UNKNOWN INDICATION
     Dosage: UNK
     Route: 048
  2. TOLVAPTAN [Concomitant]
     Active Substance: TOLVAPTAN
     Indication: CONGENITAL CYSTIC KIDNEY DISEASE
     Dosage: 60 MILLIGRAM, QD
     Route: 048
     Dates: start: 20200120
  3. RETACRIT [Concomitant]
     Active Substance: EPOETIN ALFA-EPBX
     Dosage: UNK
     Route: 065
  4. TOLVAPTAN [Concomitant]
     Active Substance: TOLVAPTAN
     Dosage: 30 MILLIGRAM, QD
     Route: 048
     Dates: start: 20200120
  5. LISINOPRIL. [Concomitant]
     Active Substance: LISINOPRIL
     Dosage: UNK
     Route: 065

REACTIONS (1)
  - Rash erythematous [Not Recovered/Not Resolved]
